FAERS Safety Report 11746681 (Version 1)
Quarter: 2015Q4

REPORT INFORMATION
  Report Type: Spontaneous
  Country: US (occurrence: None)
  Receive Date: 20151116
  Receipt Date: 20151116
  Transmission Date: 20160304
  Serious: No
  Sender: FDA-Public Use
  Company Number: None

PATIENT
  Age: 52 Year
  Sex: Male
  Weight: 76.66 kg

DRUGS (7)
  1. BUPROPRION [Concomitant]
     Active Substance: BUPROPION
  2. GABAPENTIN. [Concomitant]
     Active Substance: GABAPENTIN
  3. HYDROCODONE/APAP [Concomitant]
     Active Substance: ACETAMINOPHEN\HYDROCODONE BITARTRATE
  4. CYCLOBENZAPRINE [Concomitant]
     Active Substance: CYCLOBENZAPRINE
  5. OMEPRAZOLE. [Concomitant]
     Active Substance: OMEPRAZOLE
  6. MYCOPHENOLATE MOFETIL 250 MG [Suspect]
     Active Substance: MYCOPHENOLATE MOFETIL
     Indication: CONGENITAL SYPHILITIC OSTEOCHONDRITIS
     Dosage: 2 DAYS (3 DOSES)?1 CAPSULE, BID, ORAL
     Route: 048
  7. PREDNISONE. [Concomitant]
     Active Substance: PREDNISONE

REACTIONS (6)
  - Cognitive disorder [None]
  - Confusional state [None]
  - Tremor [None]
  - Dissociation [None]
  - Agitation [None]
  - Vision blurred [None]

NARRATIVE: CASE EVENT DATE: 20150914
